FAERS Safety Report 5106241-2 (Version None)
Quarter: 2006Q3

REPORT INFORMATION
  Report Type: 
  Country: None (occurrence: None)
  Receive Date: 20060912
  Receipt Date: 20060830
  Transmission Date: 20061208
  Serious: Yes (Life-Threatening, Hospitalization, Disabling)
  Sender: FDA-Public Use
  Company Number: 2006100644

PATIENT
  Age: 67 Year
  Sex: Female
  Weight: 16.7831 kg

DRUGS (1)
  1. AROMASIN [Suspect]
     Indication: BREAST CANCER
     Dosage: 20 MG (DAILY), ORAL
     Route: 048
     Dates: start: 20040401, end: 20060606

REACTIONS (4)
  - DEMYELINATION [None]
  - DISORIENTATION [None]
  - LEUKOARAIOSIS [None]
  - PARKINSONISM [None]
